FAERS Safety Report 19354145 (Version 2)
Quarter: 2021Q3

REPORT INFORMATION
  Report Type: Report from Study
  Country: US (occurrence: US)
  Receive Date: 20210531
  Receipt Date: 20210706
  Transmission Date: 20211014
  Serious: No
  Sender: FDA-Public Use
  Company Number: NVSC2021US116193

PATIENT
  Age: 71 Year
  Sex: Female

DRUGS (1)
  1. OMNITROPE [Suspect]
     Active Substance: SOMATROPIN
     Indication: HYPOPITUITARISM
     Dosage: 0.3 MG, QD
     Route: 058
     Dates: start: 20210201, end: 20210625

REACTIONS (8)
  - Arthralgia [Unknown]
  - Menopausal symptoms [Unknown]
  - Hyperhidrosis [Not Recovered/Not Resolved]
  - Amnesia [Unknown]
  - Hot flush [Not Recovered/Not Resolved]
  - Crying [Not Recovered/Not Resolved]
  - Feeling abnormal [Unknown]
  - Headache [Unknown]

NARRATIVE: CASE EVENT DATE: 20210201
